FAERS Safety Report 5964469-3 (Version None)
Quarter: 2008Q4

REPORT INFORMATION
  Report Type: 
  Country: None (occurrence: None)
  Receive Date: 20081124
  Receipt Date: 20081124
  Transmission Date: 20090506
  Serious: Yes (Other)
  Sender: FDA-Public Use
  Company Number: None

PATIENT
  Age: 57 Year
  Sex: Male
  Weight: 95.2554 kg

DRUGS (2)
  1. PAMELOR [Suspect]
     Indication: DEPRESSION
     Dosage: 10 MG 7 CAPSULES @ P.M. PO
     Route: 048
     Dates: start: 20081022
  2. PAMELOR [Suspect]
     Indication: MALE SEXUAL DYSFUNCTION
     Dosage: 10 MG 7 CAPSULES @ P.M. PO
     Route: 048
     Dates: start: 20081022

REACTIONS (10)
  - ANGER [None]
  - BLOOD URINE PRESENT [None]
  - COMMUNICATION DISORDER [None]
  - CONDITION AGGRAVATED [None]
  - CRYING [None]
  - DEPRESSION [None]
  - DRUG EFFECT DECREASED [None]
  - INSOMNIA [None]
  - MOOD SWINGS [None]
  - PARANOIA [None]
